FAERS Safety Report 9320656 (Version 1)
Quarter: 2013Q2

REPORT INFORMATION
  Report Type: Spontaneous
  Country: US (occurrence: US)
  Receive Date: 20130531
  Receipt Date: 20130531
  Transmission Date: 20140414
  Serious: Yes (Hospitalization)
  Sender: FDA-Public Use
  Company Number: US-BIOGENIDEC-2013BI047843

PATIENT
  Sex: Male

DRUGS (2)
  1. AVONEX [Suspect]
     Indication: MULTIPLE SCLEROSIS
     Route: 030
     Dates: start: 19960801, end: 20100115
  2. STEROID [Concomitant]
     Indication: PRODUCT USED FOR UNKNOWN INDICATION

REACTIONS (6)
  - Osteonecrosis [Recovered/Resolved]
  - Femur fracture [Recovered/Resolved]
  - Muscle spasms [Recovered/Resolved]
  - Gait disturbance [Not Recovered/Not Resolved]
  - General symptom [Unknown]
  - Pyrexia [Recovered/Resolved]
